FAERS Safety Report 10045666 (Version 1)
Quarter: 2014Q1

REPORT INFORMATION
  Report Type: Spontaneous
  Country: FR (occurrence: FR)
  Receive Date: 20140328
  Receipt Date: 20140328
  Transmission Date: 20141002
  Serious: Yes (Other)
  Sender: FDA-Public Use
  Company Number: FR-MYLANLABS-2014S1006393

PATIENT
  Age: 17 Year
  Sex: Female

DRUGS (7)
  1. IFOSFAMIDE [Suspect]
     Indication: OSTEOSARCOMA
     Dosage: 3 G/M2/DAY FOR 4 DAYS
     Route: 065
  2. METHOTREXATE [Suspect]
     Indication: OSTEOSARCOMA
     Dosage: 12 G/M2
     Route: 041
  3. VANCOMYCIN [Suspect]
  4. ETOPOSIDE [Concomitant]
     Indication: OSTEOSARCOMA
     Dosage: 75 MG/M2/DAY FOR 4 DAYS
     Route: 065
  5. FOSFOMYCIN [Concomitant]
     Indication: STAPHYLOCOCCAL INFECTION
     Route: 065
  6. FOLINIC ACID [Concomitant]
     Dosage: 12 MG/M2/6H
     Route: 065
  7. UROMITEXAN [Concomitant]
     Dosage: 3.6 G/M2/DAY
     Route: 065

REACTIONS (3)
  - Deafness [Recovered/Resolved]
  - Encephalopathy [Recovered/Resolved]
  - Accidental overdose [Unknown]
